FAERS Safety Report 5295735-5 (Version None)
Quarter: 2007Q2

REPORT INFORMATION
  Report Type: 
  Country: None (occurrence: None)
  Receive Date: 20070410
  Receipt Date: 20070410
  Transmission Date: 20071010
  Serious: Yes (Hospitalization)
  Sender: FDA-Public Use
  Company Number: None

PATIENT
  Age: 38 Year
  Sex: Male

DRUGS (4)
  1. BORTEZOMIB [Suspect]
     Indication: PHARYNGEAL CANCER RECURRENT
     Dosage: 2.56MG,WEEKLY,IV
     Route: 042
     Dates: start: 20050829
  2. BORTEZOMIB [Suspect]
     Indication: PHARYNGEAL CANCER RECURRENT
     Dosage: 2.56MG,WEEKLY,IV
     Route: 042
     Dates: start: 20050906
  3. DOCETAXEL [Suspect]
     Indication: PHARYNGEAL CANCER RECURRENT
     Dosage: 64MG, WEEKLY, IV
     Route: 042
     Dates: start: 20050829
  4. DOCETAXEL [Suspect]
     Indication: PHARYNGEAL CANCER RECURRENT
     Dosage: 64MG, WEEKLY, IV
     Route: 042
     Dates: start: 20050906

REACTIONS (1)
  - CONVULSION [None]
